FAERS Safety Report 17384867 (Version 1)
Quarter: 2020Q1

REPORT INFORMATION
  Report Type: Spontaneous
  Country: US (occurrence: US)
  Receive Date: 20200206
  Receipt Date: 20200206
  Transmission Date: 20200409
  Serious: No
  Sender: FDA-Public Use
  Company Number: US-ABBVIE-19P-163-2867742-00

PATIENT
  Sex: Female
  Weight: 102.6 kg

DRUGS (5)
  1. LYRICA [Suspect]
     Active Substance: PREGABALIN
     Indication: FIBROMYALGIA
     Route: 048
  2. LYRICA [Suspect]
     Active Substance: PREGABALIN
     Indication: RHEUMATOID ARTHRITIS
  3. LYRICA [Suspect]
     Active Substance: PREGABALIN
     Indication: NEUROPATHY PERIPHERAL
  4. HUMIRA [Suspect]
     Active Substance: ADALIMUMAB
     Indication: PRODUCT USED FOR UNKNOWN INDICATION
     Route: 058
     Dates: start: 201904, end: 2019
  5. LYRICA [Suspect]
     Active Substance: PREGABALIN
     Indication: SPINAL STENOSIS
     Route: 048
     Dates: end: 20190712

REACTIONS (12)
  - Pruritus [Recovered/Resolved]
  - Headache [Unknown]
  - Pain [Unknown]
  - Malaise [Recovering/Resolving]
  - Mobility decreased [Unknown]
  - Arthralgia [Unknown]
  - Grunting [Unknown]
  - Back pain [Unknown]
  - Nausea [Recovered/Resolved]
  - Unevaluable event [Unknown]
  - Weight decreased [Unknown]
  - Therapeutic response shortened [Unknown]

NARRATIVE: CASE EVENT DATE: 2019
